FAERS Safety Report 11348921 (Version 4)
Quarter: 2015Q4

REPORT INFORMATION
  Report Type: Spontaneous
  Country: JP (occurrence: JP)
  Receive Date: 20150807
  Receipt Date: 20151007
  Transmission Date: 20160304
  Serious: Yes (Other)
  Sender: FDA-Public Use
  Company Number: JP-ROCHE-1618648

PATIENT
  Age: 5 Day
  Sex: Female
  Weight: 4.65 kg

DRUGS (4)
  1. URSO [Concomitant]
     Active Substance: URSODIOL
     Indication: CHOLESTASIS
     Route: 065
     Dates: start: 20120615, end: 20130313
  2. DENOSINE [Suspect]
     Active Substance: GANCICLOVIR
     Indication: CONGENITAL CYTOMEGALOVIRUS INFECTION
     Route: 041
     Dates: start: 20120502, end: 20120620
  3. INCREMIN (JAPAN) [Concomitant]
     Indication: ANAEMIA
     Route: 048
     Dates: start: 20120528, end: 20121024
  4. VALIXA [Suspect]
     Active Substance: VALGANCICLOVIR
     Indication: CONGENITAL CYTOMEGALOVIRUS INFECTION
     Route: 048
     Dates: start: 20120620, end: 20120912

REACTIONS (2)
  - Neutrophil count decreased [Recovered/Resolved]
  - Liver disorder [Recovered/Resolved]

NARRATIVE: CASE EVENT DATE: 20120506
